FAERS Safety Report 8512604-5 (Version None)
Quarter: 2012Q3

REPORT INFORMATION
  Report Type: 
  Country: None (occurrence: None)
  Receive Date: 20120716
  Receipt Date: 20120625
  Transmission Date: 20120928
  Serious: No
  Sender: FDA-Public Use
  Company Number: US-ASTRAZENECA-2012SE42959

PATIENT
  Age: 55 Year
  Sex: Female

DRUGS (3)
  1. SEROQUEL [Suspect]
     Indication: DEPRESSION
     Route: 048
  2. RISPERDAL [Concomitant]
  3. WELLBUTRIN [Concomitant]

REACTIONS (3)
  - DRUG DOSE OMISSION [None]
  - FLAT AFFECT [None]
  - MOOD SWINGS [None]
